FAERS Safety Report 5370299-6 (Version None)
Quarter: 2007Q2

REPORT INFORMATION
  Report Type: 
  Country: None (occurrence: None)
  Receive Date: 20070626
  Receipt Date: 20070618
  Transmission Date: 20071010
  Serious: Yes (Other)
  Sender: FDA-Public Use
  Company Number: US-AVENTIS-200714510US

PATIENT
  Age: 85 Year
  Sex: Female

DRUGS (4)
  1. LANTUS [Suspect]
     Indication: DIABETES MELLITUS NON-INSULIN-DEPENDENT
     Dates: start: 20070421
  2. LANTUS [Suspect]
  3. LANTUS [Suspect]
  4. TOPROL-XL [Concomitant]
     Dosage: DOSE: UNK

REACTIONS (13)
  - BLINDNESS [None]
  - BLOOD GLUCOSE INCREASED [None]
  - CONFUSIONAL STATE [None]
  - CONJUNCTIVITIS [None]
  - DEAFNESS [None]
  - DIZZINESS [None]
  - DRUG INTOLERANCE [None]
  - EYE DISCHARGE [None]
  - EYE PAIN [None]
  - OCULAR HYPERAEMIA [None]
  - PRURITUS [None]
  - SPEECH DISORDER [None]
  - VISUAL ACUITY REDUCED [None]
